FAERS Safety Report 4567492-9 (Version None)
Quarter: 2005Q1

REPORT INFORMATION
  Report Type: 
  Country: None (occurrence: None)
  Receive Date: 20050127
  Receipt Date: 20050113
  Transmission Date: 20050727
  Serious: Yes (Disabling, Other)
  Sender: FDA-Public Use
  Company Number: 2004-0007806

PATIENT
  Age: 50 Year
  Sex: Male

DRUGS (6)
  1. HEPSERA [Suspect]
     Indication: HEPATITIS B
     Dates: start: 20040301, end: 20041109
  2. ZEFFIX (LAMIVUDINE) [Suspect]
     Indication: HEPATITIS B
     Dates: start: 20030501, end: 20041109
  3. PEGASYS [Suspect]
     Indication: HEPATITIS B
     Dosage: 180 MCG, 1 IN 1 WK
     Dates: start: 20040903, end: 20041109
  4. EUGLUCON (GLIBENCLAMIDE) [Concomitant]
  5. METFORMIN HCL [Concomitant]
  6. VITAMIN E [Concomitant]

REACTIONS (8)
  - CRANIAL NERVE PALSIES MULTIPLE [None]
  - DIPLOPIA [None]
  - FACIAL PALSY [None]
  - PARAESTHESIA [None]
  - POLYNEUROPATHY [None]
  - TINNITUS [None]
  - TRIGEMINAL PALSY [None]
  - VIIITH NERVE LESION [None]
